FAERS Safety Report 16770053 (Version 1)
Quarter: 2019Q3

REPORT INFORMATION
  Report Type: Report from Study
  Country: CA (occurrence: CA)
  Receive Date: 20190904
  Receipt Date: 20190904
  Transmission Date: 20191005
  Serious: Yes (Other)
  Sender: FDA-Public Use
  Company Number: CA-ROCHE-1686800

PATIENT
  Age: 65 Year
  Sex: Male
  Weight: 86 kg

DRUGS (8)
  1. RAMIPRIL. [Concomitant]
     Active Substance: RAMIPRIL
     Route: 065
  2. ACTEMRA [Suspect]
     Active Substance: TOCILIZUMAB
     Indication: RHEUMATOID ARTHRITIS
     Route: 042
     Dates: start: 20151117
  3. TRAMACET [Concomitant]
     Active Substance: ACETAMINOPHEN\TRAMADOL
  4. ACTEMRA [Suspect]
     Active Substance: TOCILIZUMAB
     Route: 042
     Dates: start: 20151218
  5. RABEPRAZOLE [Concomitant]
     Active Substance: RABEPRAZOLE
  6. ASPIRIN [ACETYLSALICYLIC ACID] [Concomitant]
     Active Substance: ASPIRIN
     Route: 065
  7. ATORVASTATIN [Concomitant]
     Active Substance: ATORVASTATIN
  8. TAMULOSIN [Concomitant]
     Active Substance: TAMSULOSIN

REACTIONS (17)
  - Swollen tongue [Unknown]
  - Rash generalised [Unknown]
  - Weight increased [Unknown]
  - Skin lesion [Unknown]
  - Respiratory rate decreased [Unknown]
  - Hypertension [Unknown]
  - Glossodynia [Recovering/Resolving]
  - Blood pressure increased [Unknown]
  - General physical health deterioration [Not Recovered/Not Resolved]
  - Musculoskeletal pain [Not Recovered/Not Resolved]
  - Nausea [Recovering/Resolving]
  - Weight decreased [Not Recovered/Not Resolved]
  - Oxygen saturation decreased [Unknown]
  - Eye pain [Recovering/Resolving]
  - Pruritus [Recovering/Resolving]
  - Blood pressure systolic increased [Unknown]
  - Body temperature decreased [Unknown]

NARRATIVE: CASE EVENT DATE: 20151218
